FAERS Safety Report 8016048-4 (Version None)
Quarter: 2011Q4

REPORT INFORMATION
  Report Type: 
  Country: None (occurrence: None)
  Receive Date: 20111228
  Receipt Date: 20111228
  Transmission Date: 20120403
  Serious: Yes (Hospitalization)
  Sender: FDA-Public Use
  Company Number: None

PATIENT
  Sex: Female
  Weight: 85 kg

DRUGS (2)
  1. IFOSFAMIDE [Suspect]
     Dosage: 6272 MG
  2. TAXOL [Suspect]
     Dosage: 265 MG

REACTIONS (12)
  - CONFUSIONAL STATE [None]
  - NO THERAPEUTIC RESPONSE [None]
  - DRUG CLEARANCE DECREASED [None]
  - NEPHROPATHY TOXIC [None]
  - HYPERTENSION [None]
  - TACHYCARDIA [None]
  - MENTAL STATUS CHANGES [None]
  - RENAL FAILURE ACUTE [None]
  - HYDRONEPHROSIS [None]
  - POSTURING [None]
  - NEUROTOXICITY [None]
  - HAEMODIALYSIS [None]
